FAERS Safety Report 6162027-1 (Version None)
Quarter: 2009Q2

REPORT INFORMATION
  Report Type: 
  Country: None (occurrence: None)
  Receive Date: 20090417
  Receipt Date: 20090417
  Transmission Date: 20091009
  Serious: Yes (Other)
  Sender: FDA-Public Use
  Company Number: None

PATIENT
  Age: 86 Year
  Sex: Male
  Weight: 69 kg

DRUGS (10)
  1. ENOXAPARIN SODIUM [Suspect]
     Indication: THROMBOSIS PROPHYLAXIS
     Dosage: 40 MG DAILY SQ
     Route: 058
     Dates: start: 20090221, end: 20090224
  2. ASPIRIN [Suspect]
     Indication: CORONARY ARTERY DISEASE
     Dosage: 81 MG DAILY PO, PRIOR TO ADMISSION
     Route: 048
  3. AMANTADINE HCL [Concomitant]
  4. ATORVASTATIN [Concomitant]
  5. CARBIDOPA [Concomitant]
  6. ENTACAPONE [Concomitant]
  7. LEVODOPA [Concomitant]
  8. MEGESTROL ACETATE [Concomitant]
  9. METOPROLOL TARTRATE [Concomitant]
  10. TERAZOSIN HCL [Concomitant]

REACTIONS (5)
  - CONDITION AGGRAVATED [None]
  - PARKINSON'S DISEASE [None]
  - POST PROCEDURAL COMPLICATION [None]
  - SUBDURAL HAEMATOMA [None]
  - UNRESPONSIVE TO STIMULI [None]
